FAERS Safety Report 4855754-7 (Version None)
Quarter: 2005Q4

REPORT INFORMATION
  Report Type: 
  Country: None (occurrence: None)
  Receive Date: 20051215
  Receipt Date: 20051215
  Transmission Date: 20060501
  Serious: Yes (Hospitalization, Disabling, Other)
  Sender: FDA-Public Use
  Company Number: None

PATIENT
  Age: 21 Year
  Sex: Male
  Weight: 79.3795 kg

DRUGS (1)
  1. GEODON [Suspect]
     Indication: SCHIZOPHRENIA, PARANOID TYPE
     Dosage: 40 MG TWICE PER DAY BUCCAL
     Route: 002
     Dates: start: 20020830, end: 20050910

REACTIONS (2)
  - HEPATIC STEATOSIS [None]
  - HEPATOCELLULAR DAMAGE [None]
